FAERS Safety Report 9886372 (Version 1)
Quarter: 2014Q1

REPORT INFORMATION
  Report Type: Spontaneous
  Country: JP (occurrence: JP)
  Receive Date: 20140210
  Receipt Date: 20140210
  Transmission Date: 20141002
  Serious: Yes (Other)
  Sender: FDA-Public Use
  Company Number: JP-ACTAVIS-2014-01907

PATIENT
  Age: 36 Year
  Sex: Female
  Weight: 36 kg

DRUGS (4)
  1. PREDNISOLONE (UNKNOWN) [Suspect]
     Indication: DEAFNESS NEUROSENSORY
     Dosage: 40 MG, DAILY
     Route: 065
  2. HYDROCORTISONE (UNKNOWN) [Suspect]
     Indication: ADRENOCORTICOTROPIC HORMONE DEFICIENCY
     Dosage: 10 UNK, UNK
     Route: 065
  3. HYDROCORTISONE (UNKNOWN) [Suspect]
     Dosage: 15 MG, DAILY
     Route: 065
  4. HYDROCORTISONE (UNKNOWN) [Suspect]
     Dosage: 30 MG, DAILY
     Route: 065

REACTIONS (1)
  - Substance-induced psychotic disorder [Recovered/Resolved]
